FAERS Safety Report 6734718-2 (Version None)
Quarter: 2010Q3

REPORT INFORMATION
  Report Type: 
  Country: None (occurrence: None)
  Receive Date: 20100519
  Receipt Date: 20100519
  Transmission Date: 20110219
  Serious: Yes (Other)
  Sender: FDA-Public Use
  Company Number: None

PATIENT
  Sex: Female
  Weight: 68.0396 kg

DRUGS (1)
  1. MOVIPREP [Suspect]
     Indication: COLONOSCOPY
     Dosage: 1 LITER PATIENT MIXES 2 TIMES PO
     Route: 048
     Dates: start: 20100516, end: 20100516

REACTIONS (6)
  - CONVULSION [None]
  - DECREASED ACTIVITY [None]
  - FALL [None]
  - MUSCLE SPASMS [None]
  - RIB FRACTURE [None]
  - SKELETAL INJURY [None]
